FAERS Safety Report 16288427 (Version 2)
Quarter: 2020Q2

REPORT INFORMATION
  Report Type: Spontaneous
  Country: GB (occurrence: GB)
  Receive Date: 20190509
  Receipt Date: 20200428
  Transmission Date: 20200713
  Serious: Yes (Other)
  Sender: FDA-Public Use
  Company Number: GB-SUN PHARMACEUTICAL INDUSTRIES LTD-2019R1-207246

PATIENT
  Age: 27 Year
  Sex: Female

DRUGS (2)
  1. METFORMIN [Suspect]
     Active Substance: METFORMIN HYDROCHLORIDE
     Indication: TYPE 2 DIABETES MELLITUS
     Dosage: UNK
     Route: 065
  2. INSULIN [Suspect]
     Active Substance: INSULIN NOS
     Indication: TYPE 2 DIABETES MELLITUS
     Dosage: UNK
     Route: 065

REACTIONS (11)
  - Dehydration [Unknown]
  - Diabetic ketoacidosis [Unknown]
  - Ketosis [Unknown]
  - Premature separation of placenta [Unknown]
  - Acute kidney injury [Unknown]
  - Tachycardia [Unknown]
  - Premature delivery [Unknown]
  - Exposure during pregnancy [Unknown]
  - Polyhydramnios [Unknown]
  - Vaginal haemorrhage [Unknown]
  - Pre-eclampsia [Unknown]
